FAERS Safety Report 16230294 (Version 1)
Quarter: 2019Q2

REPORT INFORMATION
  Report Type: Spontaneous
  Country: AU (occurrence: AU)
  Receive Date: 20190423
  Receipt Date: 20190423
  Transmission Date: 20190711
  Serious: Yes (Hospitalization)
  Sender: FDA-Public Use
  Company Number: AU-AMREGENT-20190759

PATIENT
  Sex: Female

DRUGS (1)
  1. FERINJECT [Suspect]
     Active Substance: FERRIC CARBOXYMALTOSE
     Dosage: UNKNOWN
     Route: 041
     Dates: start: 20190402

REACTIONS (9)
  - Dizziness [Unknown]
  - Vomiting [Unknown]
  - Hospitalisation [Unknown]
  - Dyspnoea [Unknown]
  - Rash [Unknown]
  - Body temperature increased [Unknown]
  - Headache [Not Recovered/Not Resolved]
  - Heart rate increased [Unknown]
  - Nausea [Unknown]

NARRATIVE: CASE EVENT DATE: 201904
